FAERS Safety Report 8388466-6 (Version None)
Quarter: 2012Q2

REPORT INFORMATION
  Report Type: 
  Country: None (occurrence: None)
  Receive Date: 20120525
  Receipt Date: 20120504
  Transmission Date: 20120825
  Serious: Yes (Hospitalization)
  Sender: FDA-Public Use
  Company Number: US-ROCHE-1060740

PATIENT
  Age: 77 Year
  Sex: Male
  Weight: 66.6 kg

DRUGS (5)
  1. CARBOPLATIN [Suspect]
     Indication: NEOPLASM
     Dosage: LAST DOSE: 648 MG, DATE OF LAST DOS PRIOR TO SAE: 05/APR/2012
     Route: 042
     Dates: start: 20120213
  2. ACYCLOVIR [Suspect]
     Indication: RASH
  3. AVASTIN [Suspect]
     Indication: NEOPLASM
     Dosage: DATE OF LAST DOS PRIOR TO SAE: 13/FEB/2012
     Route: 042
  4. GDC-0980 (PI3K/MTOR INHIBITOR) [Suspect]
     Indication: NEOPLASM
     Dosage: LAST DOSE: 25 MG, DATE OF LAST DOS PRIOR TO SAE: 13 FEB 2012
     Route: 048
     Dates: start: 20120213
  5. PACLITAXEL [Suspect]
     Indication: NEOPLASM
     Dosage: LAST DOSE: 360 MG, DATE OF LAST DOS PRIOR TO SAE: 05/APR/2012
     Route: 042
     Dates: start: 20120213

REACTIONS (2)
  - NEUTROPENIA [None]
  - PNEUMONIA [None]
